FAERS Safety Report 23920153 (Version 1)
Quarter: 2024Q2

REPORT INFORMATION
  Report Type: Spontaneous
  Country: BD (occurrence: None)
  Receive Date: 20240530
  Receipt Date: 20240530
  Transmission Date: 20240716
  Serious: Yes (Other)
  Sender: FDA-Public Use
  Company Number: BD-ROCHE-3571064

PATIENT
  Age: 58 Year
  Sex: Male
  Weight: 55 kg

DRUGS (1)
  1. TECENTRIQ [Suspect]
     Active Substance: ATEZOLIZUMAB
     Indication: Oesophageal cancer metastatic
     Dosage: COMPLETED 4 CYCLES TILL 28/03/24 WITH TECENTRIQ MONOTHERAPY
     Route: 041

REACTIONS (2)
  - Off label use [Unknown]
  - Brain neoplasm [Unknown]
